FAERS Safety Report 15439493 (Version 1)
Quarter: 2018Q3

REPORT INFORMATION
  Report Type: Report from Study
  Country: US (occurrence: US)
  Receive Date: 20180928
  Receipt Date: 20180928
  Transmission Date: 20181010
  Serious: No
  Sender: FDA-Public Use
  Company Number: PHEH2018US040765

PATIENT
  Sex: Female
  Weight: 92.97 kg

DRUGS (1)
  1. GLATOPA [Suspect]
     Active Substance: GLATIRAMER ACETATE
     Indication: MULTIPLE SCLEROSIS
     Dosage: 40 MG, Q3W (ROTATING SITES)
     Route: 058

REACTIONS (4)
  - Injection site reaction [Recovering/Resolving]
  - Injection site pruritus [Recovering/Resolving]
  - Injection site mass [Recovering/Resolving]
  - Injection site warmth [Recovering/Resolving]
